FAERS Safety Report 9579887 (Version 1)
Quarter: 2013Q3

REPORT INFORMATION
  Report Type: Spontaneous
  Country: US (occurrence: None)
  Receive Date: 20130916
  Receipt Date: 20130916
  Transmission Date: 20140515
  Serious: Yes (Other)
  Sender: FDA-Public Use
  Company Number: JPI-P-026390

PATIENT
  Age: 42 Year
  Sex: Male
  Weight: 96.16 kg

DRUGS (13)
  1. XYREM (500 MILLIGRAM/MILLILITERS, SOLUTION) (SODIUM OXYBATE) [Suspect]
     Indication: NARCOLEPSY
     Dosage: 4.5 GM (2.25 GM, 2 IN 1 D), ORAL
     Route: 048
     Dates: start: 20121109, end: 20121110
  2. XYREM (500 MILLIGRAM/MILLILITERS, SOLUTION) (SODIUM OXYBATE) [Suspect]
     Indication: SOMNOLENCE
     Dosage: 4.5 GM (2.25 GM, 2 IN 1 D), ORAL
     Route: 048
     Dates: start: 20121109, end: 20121110
  3. ALBUTEROL SULFATE [Concomitant]
  4. MULTIVITAMIN [Concomitant]
  5. BECLOMETHASONE DIPROPIONATE HFA [Concomitant]
  6. METFORMIN [Concomitant]
  7. SELEGILINE [Concomitant]
  8. LISINOPRIL [Concomitant]
  9. OMEPRAZOLE [Concomitant]
  10. GABAPENTIN [Concomitant]
  11. FEXOFENADINE HYDROCHLORIDE [Concomitant]
  12. VITAMIN D [Concomitant]
  13. FLAX SEED OIL [Concomitant]

REACTIONS (9)
  - Blood pressure increased [None]
  - Condition aggravated [None]
  - Anxiety [None]
  - Abdominal pain upper [None]
  - Nausea [None]
  - Nervousness [None]
  - Dyspnoea [None]
  - Headache [None]
  - Chest pain [None]
